FAERS Safety Report 16070621 (Version 1)
Quarter: 2019Q2

REPORT INFORMATION
  Report Type: Spontaneous
  Country: US (occurrence: US)
  Receive Date: 20190313
  Receipt Date: 20190313
  Transmission Date: 20190711
  Serious: Yes (Hospitalization)
  Sender: FDA-Public Use
  Company Number: None

PATIENT
  Age: 83 Year
  Sex: Male

DRUGS (6)
  1. ASPIRIN 81 MG [Concomitant]
     Active Substance: ASPIRIN
  2. PRILOSEC [Concomitant]
     Active Substance: OMEPRAZOLE MAGNESIUM
  3. LOVASTATIN. [Concomitant]
     Active Substance: LOVASTATIN
  4. ALLIGN PROBIOTIC [Concomitant]
  5. TREMFYA [Suspect]
     Active Substance: GUSELKUMAB
     Indication: PSORIASIS
     Dosage: ?          OTHER FREQUENCY:ONE TIME;?
     Route: 058
     Dates: start: 20190129, end: 20190129
  6. METOPROLOL. [Concomitant]
     Active Substance: METOPROLOL

REACTIONS (4)
  - Decreased appetite [None]
  - Depression [None]
  - Abdominal distension [None]
  - Anxiety [None]

NARRATIVE: CASE EVENT DATE: 20190217
